FAERS Safety Report 6162388-3 (Version None)
Quarter: 2009Q2

REPORT INFORMATION
  Report Type: 
  Country: None (occurrence: None)
  Receive Date: 20090421
  Receipt Date: 20090407
  Transmission Date: 20091009
  Serious: Yes (Life-Threatening, Hospitalization, Other)
  Sender: FDA-Public Use
  Company Number: GB-PFIZER INC-2008081903

PATIENT

DRUGS (7)
  1. GABAPENTIN [Suspect]
     Indication: ARTHRALGIA
     Dosage: 300 MG, 3X/DAY
     Route: 048
  2. AMLODIPINE [Concomitant]
     Indication: HYPERTENSION
     Dosage: 5 MG, 1X/DAY
  3. DICLOFENAC [Concomitant]
     Indication: ARTHRALGIA
     Dosage: 75 MG, 2X/DAY
  4. DIHYDROCODEINE BITARTRATE INJ [Concomitant]
     Indication: ARTHRALGIA
  5. FUROSEMIDE [Concomitant]
     Indication: HYPERTENSION
     Dosage: 80 MG, 1X/DAY
  6. IRBESARTAN [Concomitant]
     Indication: HYPERTENSION
     Dosage: 300 MG, 1X/DAY
  7. TRAMADOL HCL [Concomitant]
     Indication: ARTHRALGIA
     Dosage: 50 MG, 4X/DAY

REACTIONS (5)
  - ANAEMIA [None]
  - LIVER FUNCTION TEST ABNORMAL [None]
  - LOSS OF CONSCIOUSNESS [None]
  - RENAL FAILURE [None]
  - SEPTIC SHOCK [None]
